FAERS Safety Report 7501212-0 (Version None)
Quarter: 2011Q2

REPORT INFORMATION
  Report Type: 
  Country: None (occurrence: None)
  Receive Date: 20110524
  Receipt Date: 20110429
  Transmission Date: 20111010
  Serious: Yes (Other)
  Sender: FDA-Public Use
  Company Number: US-UCBSA-033220

PATIENT
  Sex: Female
  Weight: 65 kg

DRUGS (13)
  1. LORAZEPAM [Concomitant]
     Route: 048
     Dates: start: 19940101
  2. CALCIUM VITAMIN D [Concomitant]
     Dosage: 500/200MG,1000/400MG,2 TABLETS A DAY
     Route: 048
     Dates: start: 19940101
  3. PREDNISONE [Concomitant]
     Indication: CROHN'S DISEASE
     Route: 048
     Dates: start: 19940101
  4. LUMIGAN [Concomitant]
     Indication: GLAUCOMA
     Route: 047
  5. CIMZIA [Suspect]
     Indication: CROHN'S DISEASE
     Route: 058
     Dates: start: 20110325
  6. PRILOSEC [Concomitant]
     Route: 048
     Dates: start: 19940101
  7. OXYCODONE HCL [Concomitant]
     Indication: PAIN
     Dosage: 5/325 MG,Q4 HOURS OR AS NEEDED,HAS NOT TAKEN IN A WHILE
     Route: 048
     Dates: start: 19940101
  8. VITAMIN B-12 [Concomitant]
     Dosage: MONTHLY,IM(DELTOID)
     Dates: start: 19940101
  9. DIOPHEN ATROPINE GENERIC FOR (LOMOTIL) [Concomitant]
     Dosage: 2.5/0.25MG,2TO 8 PILLS DAILY AND TAKES 2 A DAY,5/0.50 MG
     Route: 048
     Dates: start: 19940101
  10. HYDROCHLOROTHIAZIDE [Concomitant]
     Dosage: 25 MG,1/2 TABLET DAILY,
     Route: 048
     Dates: start: 19940101
  11. IRON IV [Concomitant]
     Dosage: 1 UNIT,MONTHLY,IV AT THE VA HOSPITAL
     Route: 042
     Dates: start: 19940101
  12. POTASSIUM CHLORIDE [Concomitant]
     Dates: start: 19940101
  13. APRISO [Concomitant]
     Indication: CROHN'S DISEASE
     Dosage: 0.375 GRAMS A CAPSULE,4 TABLETS DAILY,3 MONTHS
     Route: 048

REACTIONS (3)
  - BLOOD POTASSIUM DECREASED [None]
  - HAEMOGLOBIN DECREASED [None]
  - HAEMATOCRIT DECREASED [None]
